FAERS Safety Report 13660719 (Version 1)
Quarter: 2017Q2

REPORT INFORMATION
  Report Type: Report from Study
  Country: US (occurrence: US)
  Receive Date: 20170616
  Receipt Date: 20170616
  Transmission Date: 20170830
  Serious: Yes (Other)
  Sender: FDA-Public Use
  Company Number: US-BRISTOL-MYERS SQUIBB COMPANY-BMS-2017-024308

PATIENT
  Sex: Female

DRUGS (1)
  1. NIVOLUMAB [Suspect]
     Active Substance: NIVOLUMAB
     Indication: LUNG NEOPLASM MALIGNANT
     Route: 042

REACTIONS (6)
  - Mass [Unknown]
  - Central venous catheterisation [Unknown]
  - Flatulence [Unknown]
  - Poor venous access [Unknown]
  - Frequent bowel movements [Unknown]
  - Abdominal discomfort [Unknown]
